FAERS Safety Report 16304975 (Version 1)
Quarter: 2019Q2

REPORT INFORMATION
  Report Type: Report from Study
  Country: ES (occurrence: ES)
  Receive Date: 20190513
  Receipt Date: 20190513
  Transmission Date: 20190711
  Serious: Yes (Death, Hospitalization)
  Sender: FDA-Public Use
  Company Number: ES-ACTELION-A-CH2019-189288

PATIENT
  Age: 52 Year
  Sex: Female
  Weight: 45 kg

DRUGS (14)
  1. UPTRAVI [Suspect]
     Active Substance: SELEXIPAG
     Dosage: 1200 MCG, QD
     Route: 048
     Dates: start: 20190306, end: 20190320
  2. UPTRAVI [Suspect]
     Active Substance: SELEXIPAG
     Dosage: 1600 MCG, QD
     Route: 048
     Dates: start: 20190320, end: 20190402
  3. OPSUMIT [Suspect]
     Active Substance: MACITENTAN
     Indication: PULMONARY ARTERIAL HYPERTENSION
     Dosage: 10 MG, QD
     Route: 048
     Dates: start: 20190129, end: 20190410
  4. ADEMPAS [Concomitant]
     Active Substance: RIOCIGUAT
     Dosage: 4.5 MG, QD
     Dates: start: 20190328, end: 20190410
  5. UPTRAVI [Suspect]
     Active Substance: SELEXIPAG
     Indication: PULMONARY ARTERIAL HYPERTENSION
     Dosage: 2000 MCG, QD
     Route: 048
     Dates: start: 20190403, end: 20190410
  6. UPTRAVI [Suspect]
     Active Substance: SELEXIPAG
     Dosage: 800 MCG, QD
     Route: 048
     Dates: start: 20190221, end: 20190306
  7. OSELTAMIVIR [Concomitant]
     Active Substance: OSELTAMIVIR
     Indication: PNEUMONIA INFLUENZAL
  8. IMIPENEM [Concomitant]
     Active Substance: IMIPENEM
     Indication: PNEUMONIA INFLUENZAL
  9. UPTRAVI [Suspect]
     Active Substance: SELEXIPAG
     Dosage: 400 MCG, QD
     Route: 048
     Dates: start: 20190215, end: 20190221
  10. ADCIRCA [Concomitant]
     Active Substance: TADALAFIL
     Dosage: 40 MG, QD
     Dates: start: 20181027, end: 20190321
  11. LANSOPRAZOLE. [Concomitant]
     Active Substance: LANSOPRAZOLE
     Indication: GASTRITIS
     Dosage: UNK
     Route: 048
     Dates: start: 20181017, end: 20190410
  12. EUTIROX [Concomitant]
     Active Substance: LEVOTHYROXINE SODIUM
     Indication: HYPOTHYROIDISM
     Dosage: UNK
     Route: 048
     Dates: start: 20120207, end: 20190410
  13. ADEMPAS [Concomitant]
     Active Substance: RIOCIGUAT
     Dosage: 3 MG, QD
     Dates: start: 20190321, end: 20190328
  14. ENOXAPARIN [Concomitant]
     Active Substance: ENOXAPARIN
     Indication: DEEP VEIN THROMBOSIS
     Dosage: UNK
     Route: 058
     Dates: start: 20190121, end: 20190410

REACTIONS (3)
  - Disease progression [Fatal]
  - Condition aggravated [Fatal]
  - Pulmonary arterial hypertension [Fatal]
